APPROVED DRUG PRODUCT: CALCITONIN-SALMON
Active Ingredient: CALCITONIN SALMON
Strength: 200 IU/SPRAY
Dosage Form/Route: SPRAY, METERED;NASAL
Application: A076979 | Product #001 | TE Code: AB
Applicant: PH HEALTH LTD
Approved: Jun 8, 2009 | RLD: No | RS: No | Type: RX